FAERS Safety Report 7901803-9 (Version None)
Quarter: 2011Q4

REPORT INFORMATION
  Report Type: 
  Country: None (occurrence: None)
  Receive Date: 20111108
  Receipt Date: 20111031
  Transmission Date: 20120403
  Serious: Yes (Other)
  Sender: FDA-Public Use
  Company Number: PHHY2011BR097174

PATIENT
  Sex: Female
  Weight: 80 kg

DRUGS (2)
  1. EXFORGE [Suspect]
     Dosage: 0.5 DF(160/5 MG), DAILY
     Route: 048
     Dates: start: 20090101
  2. EXFORGE [Suspect]
     Indication: HYPERTENSION
     Dosage: 1 DF(160/5 MG), DAILY
     Route: 048
     Dates: start: 20090101

REACTIONS (7)
  - ARTHROPATHY [None]
  - DISLOCATION OF VERTEBRA [None]
  - ORAL DISORDER [None]
  - FALL [None]
  - BLOOD PRESSURE INCREASED [None]
  - DRUG INEFFECTIVE [None]
  - ARTHRALGIA [None]
